FAERS Safety Report 4617993-X (Version None)
Quarter: 2005Q1

REPORT INFORMATION
  Report Type: 
  Country: None (occurrence: None)
  Receive Date: 20050324
  Receipt Date: 20041208
  Transmission Date: 20050727
  Serious: Yes (Hospitalization)
  Sender: FDA-Public Use
  Company Number: FR-SANOFI-SYNTHELABO-F01200403882

PATIENT
  Sex: Male
  Weight: 65 kg

DRUGS (2)
  1. OXALIPLATIN [Suspect]
     Indication: COLORECTAL CANCER METASTATIC
     Route: 042
     Dates: start: 20041105, end: 20041105
  2. CAPECITABINE [Suspect]
     Dosage: 1300 MG TWICE DAILY FOR 2 WEEKS, Q3W
     Route: 048
     Dates: start: 20041105, end: 20041118

REACTIONS (1)
  - GENERAL PHYSICAL HEALTH DETERIORATION [None]
